FAERS Safety Report 4392225-9 (Version None)
Quarter: 2004Q3

REPORT INFORMATION
  Report Type: 
  Country: None (occurrence: None)
  Receive Date: 20040702
  Receipt Date: 20040206
  Transmission Date: 20050211
  Serious: Yes (Other)
  Sender: FDA-Public Use
  Company Number: 2004UW02191

PATIENT
  Age: 69 Year
  Sex: Female
  Weight: 90.7194 kg

DRUGS (4)
  1. CRESTOR [Suspect]
     Indication: BLOOD CHOLESTEROL INCREASED
     Dosage: 10 MG PO
     Route: 048
     Dates: start: 20040101
  2. METFORMIN [Concomitant]
  3. LISINOPRIL [Concomitant]
  4. CALCIUM [Concomitant]

REACTIONS (3)
  - INSOMNIA [None]
  - MYALGIA [None]
  - NIGHT SWEATS [None]
